FAERS Safety Report 17777968 (Version 32)
Quarter: 2025Q3

REPORT INFORMATION
  Report Type: Report from Study
  Country: US (occurrence: US)
  Receive Date: 20200513
  Receipt Date: 20250902
  Transmission Date: 20251020
  Serious: Yes (Hospitalization, Other)
  Sender: TAKEDA
  Company Number: US-SHIRE-US202016116

PATIENT
  Age: 71 Year
  Sex: Female
  Weight: 88 kg

DRUGS (44)
  1. HUMAN IMMUNOGLOBULIN G [Suspect]
     Active Substance: HUMAN IMMUNOGLOBULIN G
     Indication: Immunodeficiency common variable
  2. HUMAN IMMUNOGLOBULIN G [Suspect]
     Active Substance: HUMAN IMMUNOGLOBULIN G
  3. HUMAN IMMUNOGLOBULIN G [Suspect]
     Active Substance: HUMAN IMMUNOGLOBULIN G
     Dosage: 40 GRAM, Q3WEEKS
  4. DIPHENHYDRAMINE [Concomitant]
     Active Substance: DIPHENHYDRAMINE
  5. Levo t [Concomitant]
  6. SODIUM CHLORIDE [Concomitant]
     Active Substance: SODIUM CHLORIDE
  7. CLARITIN [Concomitant]
     Active Substance: LORATADINE
  8. EPINEPHRINE [Concomitant]
     Active Substance: EPINEPHRINE
  9. FLUOROURACIL [Concomitant]
     Active Substance: FLUOROURACIL
  10. Chloraseptic total [Concomitant]
  11. IBUPROFEN [Concomitant]
     Active Substance: IBUPROFEN
  12. ASPIRIN [Concomitant]
     Active Substance: ASPIRIN
  13. ACETAMINOPHEN [Concomitant]
     Active Substance: ACETAMINOPHEN
  14. GABAPENTIN [Concomitant]
     Active Substance: GABAPENTIN
  15. LEVOTHYROXINE SODIUM [Concomitant]
     Active Substance: LEVOTHYROXINE SODIUM
  16. LORATADINE [Concomitant]
     Active Substance: LORATADINE
  17. LACTASE [Concomitant]
     Active Substance: LACTASE
  18. EPIPEN [Concomitant]
     Active Substance: EPINEPHRINE
  19. PROAIR HFA [Concomitant]
     Active Substance: ALBUTEROL SULFATE
  20. BENADRYL [Concomitant]
     Active Substance: DIPHENHYDRAMINE HYDROCHLORIDE
  21. ESCITALOPRAM OXALATE [Concomitant]
     Active Substance: ESCITALOPRAM OXALATE
  22. MONTELUKAST SODIUM [Concomitant]
     Active Substance: MONTELUKAST SODIUM
  23. Lmx [Concomitant]
  24. METAMUCIL [Concomitant]
     Active Substance: PLANTAGO SEED
  25. VALACYCLOVIR HYDROCHLORIDE [Concomitant]
     Active Substance: VALACYCLOVIR HYDROCHLORIDE
  26. VITAMIN D3 [Concomitant]
     Active Substance: CHOLECALCIFEROL
  27. CLOTRIMAZOLE [Concomitant]
     Active Substance: CLOTRIMAZOLE
  28. ATROPINE\DIPHENOXYLATE [Concomitant]
     Active Substance: ATROPINE\DIPHENOXYLATE
  29. GENTAMICIN SULFATE [Concomitant]
     Active Substance: GENTAMICIN SULFATE
  30. MOMETASONE FUROATE [Concomitant]
     Active Substance: MOMETASONE FUROATE
  31. AMOXICILLIN\CLAVULANATE POTASSIUM [Concomitant]
     Active Substance: AMOXICILLIN\CLAVULANATE POTASSIUM
  32. VANCOMYCIN [Concomitant]
     Active Substance: VANCOMYCIN
  33. LORAZEPAM [Concomitant]
     Active Substance: LORAZEPAM
  34. ADVAIR HFA [Concomitant]
     Active Substance: FLUTICASONE PROPIONATE\SALMETEROL XINAFOATE
  35. NAC [Concomitant]
  36. ACETAMINOPHEN\HYDROCODONE [Concomitant]
     Active Substance: ACETAMINOPHEN\HYDROCODONE
  37. TYLENOL [Concomitant]
     Active Substance: ACETAMINOPHEN
  38. PROAIR HFA [Concomitant]
     Active Substance: ALBUTEROL SULFATE
  39. LEVOFLOXACIN [Concomitant]
     Active Substance: LEVOFLOXACIN
  40. VALACYCLOVIR [Concomitant]
     Active Substance: VALACYCLOVIR HYDROCHLORIDE
  41. DIPHENHYDRAMINE HYDROCHLORIDE [Concomitant]
     Active Substance: DIPHENHYDRAMINE HYDROCHLORIDE
  42. SYMBICORT [Concomitant]
     Active Substance: BUDESONIDE\FORMOTEROL FUMARATE DIHYDRATE
  43. ALBUTEROL SULFATE [Concomitant]
     Active Substance: ALBUTEROL SULFATE
  44. MODAFINIL [Concomitant]
     Active Substance: MODAFINIL

REACTIONS (27)
  - Gastric haemorrhage [Unknown]
  - Lower respiratory tract infection [Unknown]
  - Melaena [Unknown]
  - Multiple allergies [Recovering/Resolving]
  - Tenderness [Unknown]
  - Productive cough [Unknown]
  - Discharge [Unknown]
  - Seasonal allergy [Unknown]
  - Crepitations [Unknown]
  - Glossodynia [Unknown]
  - Bronchitis [Unknown]
  - Product dose omission issue [Unknown]
  - Inappropriate schedule of product administration [Unknown]
  - Gastrointestinal disorder [Unknown]
  - Upper respiratory tract infection [Unknown]
  - Sinusitis [Unknown]
  - Asthma [Unknown]
  - Somnolence [Unknown]
  - Wheezing [Unknown]
  - Rhinorrhoea [Unknown]
  - Asthenia [Unknown]
  - Cough [Unknown]
  - Muscle spasms [Unknown]
  - Dyspnoea [Unknown]
  - Back pain [Unknown]
  - Arthralgia [Unknown]
  - Fatigue [Unknown]

NARRATIVE: CASE EVENT DATE: 20221211
